FAERS Safety Report 18936403 (Version 1)
Quarter: 2021Q1

REPORT INFORMATION
  Report Type: Spontaneous
  Country: IR (occurrence: IR)
  Receive Date: 20210225
  Receipt Date: 20210225
  Transmission Date: 20210420
  Serious: Yes (Life-Threatening, Hospitalization, Other)
  Sender: FDA-Public Use
  Company Number: IR-LUPIN PHARMACEUTICALS INC.-2021-02202

PATIENT
  Age: 33 Year
  Sex: Male

DRUGS (2)
  1. TESTOSTERONE. [Suspect]
     Active Substance: TESTOSTERONE
     Indication: DRUG ABUSE
     Dosage: 400 MILLIGRAM, QD
     Route: 065
  2. HUMAN GROWTH HORMONE, RECOMBINANT [Suspect]
     Active Substance: SOMATROPIN
     Indication: DRUG ABUSE
     Dosage: 30 MILLIGRAM, QD
     Route: 065

REACTIONS (5)
  - Aortic dissection [Unknown]
  - Cardiogenic shock [Unknown]
  - Drug abuse [Unknown]
  - Cardiomyopathy [Unknown]
  - Electrocardiogram ST segment elevation [Unknown]
